FAERS Safety Report 13071491 (Version 4)
Quarter: 2019Q4

REPORT INFORMATION
  Report Type: Spontaneous
  Country: US (occurrence: US)
  Receive Date: 20161229
  Receipt Date: 20191202
  Transmission Date: 20200122
  Serious: No
  Sender: FDA-Public Use
  Company Number: US-PFIZER INC-2016594166

PATIENT
  Age: 55 Year
  Sex: Male
  Weight: 106.6 kg

DRUGS (23)
  1. SPIRIVA [Concomitant]
     Active Substance: TIOTROPIUM BROMIDE MONOHYDRATE
     Dosage: 18 UG, DAILY (INTO THE LUNGS)
     Route: 055
     Dates: start: 20190205
  2. ECOTRIN [Concomitant]
     Active Substance: ASPIRIN
     Dosage: 81 MG, DAILY
     Route: 048
  3. BENADRYL [Concomitant]
     Active Substance: DIPHENHYDRAMINE HYDROCHLORIDE
     Indication: PRURITUS
     Dosage: 25 MG, AS NEEDED (NIGHTLY)
     Route: 048
  4. EFFEXOR [Concomitant]
     Active Substance: VENLAFAXINE HYDROCHLORIDE
     Dosage: 75 MG, 1X/DAY
     Route: 048
     Dates: start: 20190909
  5. AMARYL [Concomitant]
     Active Substance: GLIMEPIRIDE
     Dosage: 2 MG, 1X/DAY (BEFORE BREAKFAST)
     Route: 048
     Dates: start: 20190909
  6. DELTASONE [Concomitant]
     Active Substance: PREDNISONE
     Dosage: 10 MG, 1X/DAY
     Route: 048
     Dates: start: 20190924
  7. CHANTIX [Suspect]
     Active Substance: VARENICLINE TARTRATE
     Indication: SMOKING CESSATION THERAPY
     Dosage: 1 MG, 2X/DAY
     Route: 048
     Dates: start: 20141210
  8. FLONASE [Concomitant]
     Active Substance: FLUTICASONE PROPIONATE
     Dosage: 1 SPRAY(S) IN EACH NOSTRIL TWICE DAILY
     Route: 045
     Dates: start: 20190501
  9. ADVAIR HFA [Concomitant]
     Active Substance: FLUTICASONE PROPIONATE\SALMETEROL XINAFOATE
     Dosage: 1 DF, 2X/DAY (1 PUFF INTO THE LUNGS 2 TIMES DAILY)
     Route: 055
     Dates: start: 20190709
  10. KENALOG [Concomitant]
     Active Substance: TRIAMCINOLONE ACETONIDE
     Dosage: UNK, 2X/DAY (APPLY CREAM EXTERNALLY TO AFFECTED AREA TWICE DAILY FOR 10 DAYS)
     Route: 061
     Dates: start: 20190806
  11. CARDURA [Concomitant]
     Active Substance: DOXAZOSIN MESYLATE
     Dosage: 4 MG, 1X/DAY
     Route: 048
     Dates: start: 20190909
  12. VIBRAMYCIN [DOXYCYCLINE HYCLATE] [Concomitant]
     Dosage: 100 MG, 2X/DAY (WITH FOOD)
     Route: 048
     Dates: start: 20190810
  13. DUONEB [Concomitant]
     Active Substance: ALBUTEROL SULFATE\IPRATROPIUM BROMIDE
     Indication: WHEEZING
     Dosage: 3 ML BY NEBULIZATION 4 TIMES DAILY AS NEEDED
     Route: 055
     Dates: start: 20191101
  14. KENALOG [Concomitant]
     Active Substance: TRIAMCINOLONE ACETONIDE
     Dosage: UNK (APPLY CREAM EXTERNALLY TO AFFECTED AREAS AS DIRECTED)
     Route: 061
     Dates: start: 20180430
  15. VENTOLIN HFA [Concomitant]
     Active Substance: ALBUTEROL SULFATE
     Indication: WHEEZING
     Dosage: 2 DF, AS NEEDED (2 PUFFS INTO THE LUNGS EVERY 4 HOURS AS NEEDED)
     Route: 055
     Dates: start: 20190709
  16. CHANTIX [Suspect]
     Active Substance: VARENICLINE TARTRATE
     Indication: NICOTINE DEPENDENCE
     Dosage: 1 MG, 2X/DAY
     Route: 048
     Dates: start: 20191112
  17. FOSAMAX [Concomitant]
     Active Substance: ALENDRONATE SODIUM
     Dosage: 35 MG, DAILY (EVERY 7 DAYS)
     Route: 048
     Dates: start: 20190819
  18. PULMICORT TURBUHALER [Concomitant]
     Active Substance: BUDESONIDE
     Dosage: 2 ML, 2X/DAY
     Route: 055
     Dates: start: 20191101
  19. CRESTOR [Concomitant]
     Active Substance: ROSUVASTATIN CALCIUM
     Dosage: 40 MG, DAILY
     Route: 048
     Dates: start: 20190819
  20. PROAIR HFA [Concomitant]
     Active Substance: ALBUTEROL SULFATE
     Indication: WHEEZING
     Dosage: 2 DF, AS NEEDED (2 PUFFS INTO THE LUNGS EVERY 4 HOURS AS NEEDED )
     Route: 055
     Dates: start: 20190709
  21. ALOE VERA [Concomitant]
     Active Substance: ALOE VERA LEAF
     Dosage: 500 MG, UNK
     Route: 048
  22. OCEAN SALINE NASAL SPRAY [Concomitant]
     Active Substance: SODIUM CHLORIDE
     Dosage: 1 SPRAY BY NASAL ROUTE AS NEEDED
     Route: 045
  23. PROVENTIL HFA [SALBUTAMOL] [Concomitant]
     Indication: WHEEZING
     Dosage: 2 DF, AS NEEDED (2 PUFFS INTO THE LUNGS EVERY 4 HOURS)
     Route: 055
     Dates: start: 20190709

REACTIONS (1)
  - Drug ineffective [Unknown]

NARRATIVE: CASE EVENT DATE: 2014
